FAERS Safety Report 18558019 (Version 1)
Quarter: 2020Q4

REPORT INFORMATION
  Report Type: Spontaneous
  Country: CA (occurrence: CA)
  Receive Date: 20201130
  Receipt Date: 20201130
  Transmission Date: 20210114
  Serious: Yes (Other)
  Sender: FDA-Public Use
  Company Number: CA-ABBVIE-20K-028-3669277-00

PATIENT
  Sex: Female

DRUGS (2)
  1. HUMIRA [Suspect]
     Active Substance: ADALIMUMAB
     Route: 058
  2. HUMIRA [Suspect]
     Active Substance: ADALIMUMAB
     Indication: CROHN^S DISEASE
     Route: 058

REACTIONS (7)
  - Secretion discharge [Unknown]
  - Dry mouth [Unknown]
  - Pharyngeal haemorrhage [Unknown]
  - Tonsillar hypertrophy [Unknown]
  - Coating in mouth [Unknown]
  - Nasal congestion [Unknown]
  - Adenoidal disorder [Unknown]
